FAERS Safety Report 4779707-2 (Version None)
Quarter: 2005Q3

REPORT INFORMATION
  Report Type: 
  Country: None (occurrence: None)
  Receive Date: 20050927
  Receipt Date: 20050920
  Transmission Date: 20060218
  Serious: Yes (Hospitalization)
  Sender: FDA-Public Use
  Company Number: PHRM2005FR02498

PATIENT
  Age: 53 Year
  Sex: Male
  Weight: 89 kg

DRUGS (6)
  1. TAREG [Suspect]
     Dosage: 80 MG, QD
     Route: 048
     Dates: start: 20050317, end: 20050323
  2. TRANXENE [Concomitant]
     Route: 048
  3. LOVENOX [Concomitant]
  4. NUBAIN [Concomitant]
  5. PERFALGAN [Concomitant]
     Route: 042
  6. TAZOCILLINE [Concomitant]
     Indication: AMPUTATION
     Route: 042

REACTIONS (4)
  - DERMATITIS EXFOLIATIVE [None]
  - FACE OEDEMA [None]
  - PYREXIA [None]
  - RENAL FAILURE ACUTE [None]
